FAERS Safety Report 11401423 (Version 3)
Quarter: 2015Q3

REPORT INFORMATION
  Report Type: Report from Study
  Country: US (occurrence: US)
  Receive Date: 20150820
  Receipt Date: 20150904
  Transmission Date: 20151125
  Serious: No
  Sender: FDA-Public Use
  Company Number: US-AMGEN-USASP2015083072

PATIENT
  Age: 23 Year
  Sex: Female

DRUGS (1)
  1. ENBREL [Suspect]
     Active Substance: ETANERCEPT
     Indication: PSORIASIS
     Dosage: 50 MG, UNK
     Route: 065
     Dates: start: 201502

REACTIONS (9)
  - Pruritus [Unknown]
  - Burning sensation [Unknown]
  - Nasal congestion [Unknown]
  - Dysphonia [Unknown]
  - Feeling abnormal [Unknown]
  - Dry skin [Unknown]
  - Skin injury [Unknown]
  - Nasopharyngitis [Unknown]
  - Drug dose omission [Unknown]
